FAERS Safety Report 4299107-1 (Version None)
Quarter: 2004Q1

REPORT INFORMATION
  Report Type: 
  Country: None (occurrence: None)
  Receive Date: 20040217
  Receipt Date: 20040204
  Transmission Date: 20041129
  Serious: Yes (Other)
  Sender: FDA-Public Use
  Company Number: 2004197899SE

PATIENT
  Age: 58 Year
  Sex: Female

DRUGS (2)
  1. ARTHROTEC [Suspect]
     Dosage: ORAL
     Route: 048
     Dates: start: 20030313, end: 20030914
  2. ZOLEDRONIC ACID (ZOLEDRONIC ACID) [Suspect]
     Dosage: 4 MG
     Dates: start: 20030313, end: 20030814

REACTIONS (1)
  - BLOOD CREATININE INCREASED [None]
